FAERS Safety Report 8346920-7 (Version None)
Quarter: 2012Q2

REPORT INFORMATION
  Report Type: 
  Country: None (occurrence: None)
  Receive Date: 20120509
  Receipt Date: 20120504
  Transmission Date: 20120825
  Serious: Yes (Other)
  Sender: FDA-Public Use
  Company Number: PHHY2012IT038607

PATIENT
  Sex: Male

DRUGS (1)
  1. TRAMADOL HYDROCHLORIDE [Suspect]
     Indication: ACCIDENTAL EXPOSURE
     Dosage: 100 MG, UNK
     Dates: start: 20120413

REACTIONS (4)
  - GENERALISED ERYTHEMA [None]
  - DYSPNOEA [None]
  - ACCIDENTAL EXPOSURE [None]
  - EXCORIATION [None]
